FAERS Safety Report 19573538 (Version 26)
Quarter: 2023Q4

REPORT INFORMATION
  Report Type: Report from Study
  Country: CO (occurrence: CO)
  Receive Date: 20210717
  Receipt Date: 20231011
  Transmission Date: 20240109
  Serious: Yes (Other)
  Sender: FDA-Public Use
  Company Number: CO-TAKEDA-2021TUS044829

PATIENT
  Age: 50 Year
  Sex: Female
  Weight: 62 kg

DRUGS (5)
  1. VEDOLIZUMAB [Suspect]
     Active Substance: VEDOLIZUMAB
     Indication: Colitis ulcerative
     Dosage: 300 MILLIGRAM
     Route: 042
     Dates: start: 20210618
  2. VEDOLIZUMAB [Suspect]
     Active Substance: VEDOLIZUMAB
     Dosage: 300 MILLIGRAM, Q4WEEKS
     Route: 042
  3. MESALAMINE [Suspect]
     Active Substance: MESALAMINE
     Indication: Product used for unknown indication
     Dosage: UNK UNK, QD
     Route: 065
  4. AZATHIOPRINE [Concomitant]
     Active Substance: AZATHIOPRINE
     Dosage: UNK
  5. ASTRAZENECA COVID-19 VACCINE [Concomitant]
     Active Substance: AZD-1222
     Dosage: UNK
     Dates: start: 20220204

REACTIONS (39)
  - Haematochezia [Recovering/Resolving]
  - Asphyxia [Unknown]
  - Colitis ulcerative [Recovering/Resolving]
  - Insomnia [Unknown]
  - Alopecia [Unknown]
  - Madarosis [Unknown]
  - Flatulence [Recovering/Resolving]
  - Dysmenorrhoea [Unknown]
  - Menstruation delayed [Unknown]
  - Muscle strain [Unknown]
  - Mucous stools [Recovering/Resolving]
  - Defaecation urgency [Recovering/Resolving]
  - Abdominal pain [Recovering/Resolving]
  - Cough [Unknown]
  - Abdominal pain lower [Recovering/Resolving]
  - Weight decreased [Recovering/Resolving]
  - Frequent bowel movements [Recovering/Resolving]
  - Platelet count decreased [Unknown]
  - Proctitis [Recovering/Resolving]
  - Weight increased [Unknown]
  - Diarrhoea [Recovering/Resolving]
  - Productive cough [Unknown]
  - Vaginal haemorrhage [Unknown]
  - Pulmonary granuloma [Unknown]
  - Vaginal discharge [Unknown]
  - Bronchitis chronic [Unknown]
  - Dry skin [Unknown]
  - Drug ineffective [Unknown]
  - Product dose omission issue [Unknown]
  - Malaise [Recovered/Resolved]
  - Urticaria [Unknown]
  - Erythema [Recovered/Resolved]
  - Chills [Recovered/Resolved]
  - Headache [Recovered/Resolved]
  - Rash [Recovered/Resolved]
  - Pruritus [Recovered/Resolved]
  - Influenza [Recovered/Resolved]
  - Pyrexia [Recovered/Resolved]
  - Bronchitis [Unknown]

NARRATIVE: CASE EVENT DATE: 20210914
